FAERS Safety Report 5233839-3 (Version None)
Quarter: 2007Q1

REPORT INFORMATION
  Report Type: 
  Country: None (occurrence: None)
  Receive Date: 20070208
  Receipt Date: 20070202
  Transmission Date: 20070707
  Serious: Yes (Death, Hospitalization)
  Sender: FDA-Public Use
  Company Number: US-MERCK-0702USA00465

PATIENT
  Age: 50 Year
  Sex: Female

DRUGS (3)
  1. HYDROCORTONE [Suspect]
     Indication: ADRENAL INSUFFICIENCY
     Route: 048
  2. HYDROCORTONE [Suspect]
     Route: 042
  3. HYDROCORTONE [Suspect]
     Route: 042

REACTIONS (7)
  - APOPTOSIS [None]
  - LACTIC ACIDOSIS [None]
  - LYMPHOMA [None]
  - MULTI-ORGAN FAILURE [None]
  - PERIPHERAL T-CELL LYMPHOMA UNSPECIFIED [None]
  - RENAL FAILURE [None]
  - SOMNOLENCE [None]
